FAERS Safety Report 7675694-8 (Version None)
Quarter: 2011Q3

REPORT INFORMATION
  Report Type: 
  Country: None (occurrence: None)
  Receive Date: 20110810
  Receipt Date: 20110801
  Transmission Date: 20111222
  Serious: Yes (Hospitalization, Disabling)
  Sender: FDA-Public Use
  Company Number: BR-ASTRAZENECA-2011SE46655

PATIENT
  Age: 60 Year
  Sex: Female
  Weight: 50 kg

DRUGS (4)
  1. ATACAND HCT [Suspect]
     Indication: HYPERTENSION
     Dosage: 16/12.5 MG OD
     Route: 048
  2. VENLIFIT [Concomitant]
     Indication: DEPRESSION
     Route: 048
     Dates: start: 20010101
  3. SULPAN [Concomitant]
     Indication: DEPRESSION
     Route: 048
     Dates: start: 20010101
  4. UNKNOWN [Concomitant]
     Indication: OSTEOARTHRITIS
     Route: 048

REACTIONS (6)
  - WEIGHT DECREASED [None]
  - DIABETES MELLITUS [None]
  - THROMBOSIS [None]
  - DIZZINESS [None]
  - POLLAKIURIA [None]
  - MEMORY IMPAIRMENT [None]
